FAERS Safety Report 23275778 (Version 1)
Quarter: 2023Q4

REPORT INFORMATION
  Report Type: Spontaneous
  Country: US (occurrence: US)
  Receive Date: 20231208
  Receipt Date: 20231208
  Transmission Date: 20240109
  Serious: Yes (Hospitalization, Other)
  Sender: FDA-Public Use
  Company Number: US-SLATERUN-2023SRLIT00028

PATIENT
  Age: 21 Year
  Sex: Female

DRUGS (1)
  1. BUPROPION [Suspect]
     Active Substance: BUPROPION
     Indication: Bipolar disorder
     Route: 048

REACTIONS (9)
  - Circulatory collapse [Recovered/Resolved]
  - Intentional overdose [Unknown]
  - Cardiogenic shock [Recovered/Resolved]
  - Electrocardiogram QT prolonged [Unknown]
  - Suicide attempt [Unknown]
  - Tachycardia [Unknown]
  - Hypotension [Unknown]
  - Dysarthria [Unknown]
  - Myoclonus [Unknown]
